FAERS Safety Report 14869451 (Version 4)
Quarter: 2018Q2

REPORT INFORMATION
  Report Type: Spontaneous
  Country: US (occurrence: US)
  Receive Date: 20180509
  Receipt Date: 20180619
  Transmission Date: 20180711
  Serious: Yes (Hospitalization, Other)
  Sender: FDA-Public Use
  Company Number: US-JNJFOC-20180500228

PATIENT
  Age: 71 Year
  Sex: Female
  Weight: 77.11 kg

DRUGS (3)
  1. STELARA [Suspect]
     Active Substance: USTEKINUMAB
     Indication: PSORIATIC ARTHROPATHY
     Route: 058
     Dates: start: 2017
  2. METHOTREXATE. [Concomitant]
     Active Substance: METHOTREXATE
     Route: 065
  3. LOSARTAN. [Concomitant]
     Active Substance: LOSARTAN
     Indication: BLOOD PRESSURE MEASUREMENT
     Route: 048

REACTIONS (5)
  - Hospitalisation [Unknown]
  - Localised infection [Recovered/Resolved]
  - Drug dose omission [Unknown]
  - Product packaging quantity issue [Unknown]
  - Infection [Unknown]

NARRATIVE: CASE EVENT DATE: 201803
